FAERS Safety Report 6467484-9 (Version None)
Quarter: 2009Q4

REPORT INFORMATION
  Report Type: 
  Country: None (occurrence: None)
  Receive Date: 20091127
  Receipt Date: 20091111
  Transmission Date: 20100525
  Serious: Yes (Death)
  Sender: FDA-Public Use
  Company Number: 2009002985

PATIENT
  Sex: Female

DRUGS (2)
  1. TARCEVA [Suspect]
     Indication: LUNG CARCINOMA CELL TYPE UNSPECIFIED STAGE IV
     Dosage: (150 MG,QD),ORAL
     Route: 048
     Dates: start: 20090505, end: 20090527
  2. TARCEVA [Suspect]
     Indication: METASTASES TO LUNG
     Dosage: (150 MG,QD),ORAL
     Route: 048
     Dates: start: 20090505, end: 20090527

REACTIONS (4)
  - HEPATIC FAILURE [None]
  - HEPATOMEGALY [None]
  - METASTASES TO LIVER [None]
  - MIXED LIVER INJURY [None]
